FAERS Safety Report 9851314 (Version 2)
Quarter: 2016Q3

REPORT INFORMATION
  Report Type: Report from Study
  Country: US (occurrence: US)
  Receive Date: 20140129
  Receipt Date: 20160902
  Transmission Date: 20161109
  Serious: Yes (Hospitalization, Other)
  Sender: FDA-Public Use
  Company Number: US-ROCHE-1339471

PATIENT
  Sex: Female

DRUGS (11)
  1. LUTEIN [Concomitant]
     Active Substance: LUTEIN
     Route: 065
  2. LUCENTIS [Suspect]
     Active Substance: RANIBIZUMAB
     Indication: NEOVASCULAR AGE-RELATED MACULAR DEGENERATION
     Dosage: MOST RECENT INJECTION WAS ON 30/DEC/2013.
     Route: 050
     Dates: start: 201302
  3. TYLENOL [Concomitant]
     Active Substance: ACETAMINOPHEN
     Route: 065
  4. LYSINE [Concomitant]
     Active Substance: LYSINE
     Route: 065
  5. LIPITOR [Concomitant]
     Active Substance: ATORVASTATIN CALCIUM
     Dosage: EVERY EVENING
     Route: 065
  6. PROTONIX (OMEPRAZOLE) [Concomitant]
     Route: 065
  7. LEVOTHYROXINE. [Concomitant]
     Active Substance: LEVOTHYROXINE
     Dosage: EVERY MORNING
     Route: 065
  8. TRENTAL [Concomitant]
     Active Substance: PENTOXIFYLLINE
     Route: 065
  9. ZYRTEC [Concomitant]
     Active Substance: CETIRIZINE HYDROCHLORIDE
     Indication: RHINORRHOEA
     Dosage: EVERY MORNING
     Route: 065
  10. FISH OIL [Concomitant]
     Active Substance: FISH OIL
     Route: 065
  11. TUMS [Concomitant]
     Active Substance: CALCIUM CARBONATE
     Route: 065

REACTIONS (3)
  - Blood urine present [Unknown]
  - Cerebrovascular accident [Unknown]
  - Visual acuity reduced [Unknown]
